FAERS Safety Report 22280312 (Version 1)
Quarter: 2023Q2

REPORT INFORMATION
  Report Type: Spontaneous
  Country: US (occurrence: US)
  Receive Date: 20230503
  Receipt Date: 20230503
  Transmission Date: 20230721
  Serious: No
  Sender: FDA-Public Use
  Company Number: US-BRISTOL-MYERS SQUIBB COMPANY-2023-062926

PATIENT
  Age: 79 Year
  Sex: Female
  Weight: 94.35 kg

DRUGS (1)
  1. ONUREG [Suspect]
     Active Substance: AZACITIDINE
     Indication: Acute myeloid leukaemia
     Dosage: FREQUENCY - 14D OF 28 DAYS.
     Route: 048
     Dates: start: 20230401

REACTIONS (1)
  - Fatigue [Not Recovered/Not Resolved]
